FAERS Safety Report 8774085 (Version 3)
Quarter: 2013Q2

REPORT INFORMATION
  Report Type: Report from Study
  Country: JP (occurrence: JP)
  Receive Date: 20120907
  Receipt Date: 20130614
  Transmission Date: 20140414
  Serious: Yes (Hospitalization)
  Sender: FDA-Public Use
  Company Number: JP-009507513-1208JPN010666

PATIENT
  Age: 51 Year
  Sex: Female
  Weight: 55 kg

DRUGS (40)
  1. PEGINTRON [Suspect]
     Indication: CHRONIC HEPATITIS C
     Dosage: 1.5 MICROGRAM PER KILOGRAM, QW
     Route: 058
     Dates: start: 20120621, end: 20120712
  2. PEGINTRON [Suspect]
     Dosage: 1.5 MICROGRAM PER KILOGRAM, QW
     Route: 058
     Dates: start: 20120726, end: 20121101
  3. PEGINTRON [Suspect]
     Dosage: 1.1 MICROGRAM PER KILOGRAM, QW
     Route: 058
     Dates: start: 20121108
  4. REBETOL [Suspect]
     Indication: CHRONIC HEPATITIS C
     Dosage: 400 MG, QD
     Route: 048
     Dates: start: 20120621, end: 20120713
  5. REBETOL [Suspect]
     Dosage: 400 MG, QD
     Route: 048
     Dates: start: 20120726, end: 20120906
  6. REBETOL [Suspect]
     Dosage: 200 MG, QD
     Route: 048
     Dates: start: 20120907, end: 20121031
  7. REBETOL [Suspect]
     Dosage: 400 MG, QD
     Route: 048
     Dates: start: 20121101, end: 20121107
  8. REBETOL [Suspect]
     Dosage: 200 MG, QD
     Route: 048
     Dates: start: 20121108
  9. TELAVIC [Suspect]
     Indication: CHRONIC HEPATITIS C
     Dosage: 1500 MG, QD
     Route: 048
     Dates: start: 20120621, end: 20120624
  10. TELAVIC [Suspect]
     Dosage: 750 MG, QD
     Route: 048
     Dates: start: 20120625, end: 20120713
  11. TELAVIC [Suspect]
     Dosage: 750 MG, QD
     Route: 048
     Dates: start: 20120726, end: 20120920
  12. TAKEPRON [Suspect]
     Indication: PROPHYLAXIS
     Dosage: 15 MG, QD, POR
     Route: 048
     Dates: start: 20120621, end: 20120720
  13. TALION (BEPOTASTINE BESYLATE) [Concomitant]
     Indication: PROPHYLAXIS
     Dosage: 20 MG, QD
     Route: 048
     Dates: start: 20120621
  14. TALION (BEPOTASTINE BESYLATE) [Concomitant]
     Dosage: 20 MG, QD
     Route: 048
     Dates: start: 20120906
  15. LOXOPROFEN [Concomitant]
     Indication: PROPHYLAXIS
     Dosage: 180 MG, QD, POR
     Route: 048
     Dates: start: 20120621, end: 20120723
  16. LOXOPROFEN [Concomitant]
     Indication: HEADACHE
     Dosage: 180 MG, QD
     Route: 048
     Dates: start: 20120728
  17. LOXOPROFEN [Concomitant]
     Dosage: 60 MG, PRN, POR
     Route: 048
     Dates: start: 20121004
  18. GASMOTIN [Concomitant]
     Indication: PROPHYLAXIS
     Dosage: 15 MG, QD, POR
     Route: 048
     Dates: start: 20120621, end: 20120714
  19. GASMOTIN [Concomitant]
     Dosage: 15 MG, QD, POR
     Route: 048
     Dates: start: 20120802, end: 20120823
  20. NIFLAN [Concomitant]
     Indication: PROPHYLAXIS
     Dosage: UNK, PRN
     Route: 031
     Dates: start: 20120622, end: 20120815
  21. NERISONA [Concomitant]
     Dosage: SINGLE USE
     Route: 061
     Dates: start: 20120626
  22. NAUZELIN [Concomitant]
     Indication: PROPHYLAXIS
     Dosage: 10 MG PER DAY AS NEEDED, POR
     Dates: start: 20120705
  23. PEPCID RPD [Concomitant]
     Indication: PROPHYLAXIS
     Dosage: 40 MG, QD, POR
     Route: 048
     Dates: start: 20120720, end: 20120723
  24. PEPCID RPD [Concomitant]
     Dosage: 20 MG, QD, POR
     Route: 048
     Dates: start: 20120727
  25. PEPCID RPD [Concomitant]
     Dosage: 20 MG, QD, POR
     Route: 048
     Dates: start: 20120802, end: 20120823
  26. PEPCID RPD [Concomitant]
     Dosage: 20 MG, QD, POR
     Route: 048
     Dates: start: 20121018, end: 20121031
  27. SOLU-MEDROL [Concomitant]
     Indication: ALLERGY PROPHYLAXIS
     Dosage: 125 MG, QD
     Route: 042
     Dates: start: 20120727, end: 20120727
  28. OMNIPAQUE [Concomitant]
     Indication: COMPUTERISED TOMOGRAM
     Dosage: 110 ML, QD
     Route: 042
     Dates: start: 20120727, end: 20120727
  29. BUSCOPAN [Concomitant]
     Indication: COMPUTERISED TOMOGRAM
     Dosage: 20 MG, QD
     Route: 030
     Dates: start: 20120730, end: 20120730
  30. LOXONIN [Concomitant]
     Indication: PROPHYLAXIS
     Dosage: 180 MG, QD, POR
     Route: 048
     Dates: start: 20120802, end: 20120823
  31. HYALEIN [Concomitant]
     Indication: DRY EYE
     Dosage: UNK, PRN
     Route: 047
     Dates: start: 20120816
  32. ALLELOCK [Concomitant]
     Indication: PROPHYLAXIS
     Dosage: 5MG DAILY, PRN
     Route: 048
     Dates: start: 20120906, end: 20121108
  33. MYSLEE [Concomitant]
     Indication: INSOMNIA
     Dosage: 5 MG/ DAY AS NEEDED, POR
     Route: 048
     Dates: start: 20120906
  34. RIZE [Concomitant]
     Indication: INSOMNIA
     Dosage: 5MG/DAY, PRN
     Route: 048
     Dates: start: 20120920
  35. FLAVITAN [Concomitant]
     Indication: STOMATITIS
     Dosage: 40 MG, QD, POR
     Route: 048
     Dates: start: 20120920
  36. KENALOG [Concomitant]
     Indication: STOMATITIS
     Dosage: UNK, PRN
     Route: 061
     Dates: start: 20120920
  37. PRIVINA [Concomitant]
     Indication: RHINITIS
     Dosage: UNK, PRN, NDR
     Route: 045
     Dates: start: 20121018
  38. VOLTAREN SR [Concomitant]
     Indication: PROPHYLAXIS
     Dosage: 37.5 MG, QD, POR
     Route: 048
     Dates: start: 20121018, end: 20121031
  39. ETIZOLAM [Concomitant]
     Indication: INSOMNIA
     Dosage: 0.5 MG/DAY, PRN, POR
     Route: 048
     Dates: start: 20121101, end: 20121128
  40. THERAPY UNSPECIFIED [Concomitant]
     Indication: RHINITIS
     Dosage: UNK, PRN, NDR
     Route: 045
     Dates: start: 20121206

REACTIONS (1)
  - Enterocolitis [Recovered/Resolved]
